FAERS Safety Report 8699742 (Version 2)
Quarter: 2013Q4

REPORT INFORMATION
  Report Type: Spontaneous
  Country: US (occurrence: US)
  Receive Date: 20120802
  Receipt Date: 20131031
  Transmission Date: 20140711
  Serious: Yes (Life-Threatening, Hospitalization)
  Sender: FDA-Public Use
  Company Number: US-009507513-1207USA011297

PATIENT
  Age: 57 Year
  Sex: Male

DRUGS (2)
  1. ZOCOR [Suspect]
     Dosage: 20 MG, HS
     Route: 048
  2. QUETIAPINE FUMARATE [Suspect]
     Dosage: 400 MG, BID
     Route: 048

REACTIONS (3)
  - Renal failure acute [Unknown]
  - Syncope [Unknown]
  - Rhabdomyolysis [Unknown]
